FAERS Safety Report 6532901-2 (Version None)
Quarter: 2010Q1

REPORT INFORMATION
  Report Type: 
  Country: None (occurrence: None)
  Receive Date: 20100111
  Receipt Date: 20100105
  Transmission Date: 20100710
  Serious: Yes (Death)
  Sender: FDA-Public Use
  Company Number: JP-ASTRAZENECA-2010SE00545

PATIENT
  Age: 76 Year
  Sex: Female

DRUGS (2)
  1. ECARD COMBINATION [Suspect]
     Indication: HYPERTENSION
     Route: 048
     Dates: start: 20090730
  2. FERROMIA [Concomitant]
     Route: 048

REACTIONS (1)
  - MYOCARDIAL INFARCTION [None]
